FAERS Safety Report 22587229 (Version 1)
Quarter: 2023Q2

REPORT INFORMATION
  Report Type: Spontaneous
  Country: US (occurrence: US)
  Receive Date: 20230612
  Receipt Date: 20230612
  Transmission Date: 20230722
  Serious: Yes (Other)
  Sender: FDA-Public Use
  Company Number: US-REGENERON PHARMACEUTICALS, INC.-2023-073502

PATIENT
  Sex: Female

DRUGS (1)
  1. EYLEA [Suspect]
     Active Substance: AFLIBERCEPT
     Indication: Diabetic retinopathy
     Dosage: TYPICALLY EVERY 3 MONTHS IN BOTH EYES; FORMULAION: UNKNOWN
     Route: 031
     Dates: start: 2021

REACTIONS (4)
  - Blindness transient [Unknown]
  - Eye haemorrhage [Unknown]
  - Visual field defect [Unknown]
  - Adverse event [Unknown]
